FAERS Safety Report 5144559-8 (Version None)
Quarter: 2006Q4

REPORT INFORMATION
  Report Type: 
  Country: None (occurrence: None)
  Receive Date: 20061031
  Receipt Date: 20061018
  Transmission Date: 20070319
  Serious: Yes (Death, Life-Threatening, Hospitalization)
  Sender: FDA-Public Use
  Company Number: 2006106185

PATIENT
  Age: 72 Year
  Sex: Male
  Weight: 76 kg

DRUGS (10)
  1. NEURONTIN [Suspect]
     Indication: PARTIAL SEIZURES
     Dosage: 1200 MG (1 D), ORAL
     Route: 048
     Dates: start: 20060626, end: 20060705
  2. MARCUMAR [Suspect]
     Dosage: ORAL
     Route: 048
  3. RAMIPRIL [Concomitant]
  4. METOPROLOL SUCCINATE [Concomitant]
  5. AMARYL [Concomitant]
  6. BERLINSULIN (INSULIN HUMAN INJECTION, ISOPHANE) [Concomitant]
  7. TOREM (TORASEMIDE) [Concomitant]
  8. ESIDRIX [Concomitant]
  9. ALDACTONE [Concomitant]
  10. ATORVASTATIN CALCIUM [Concomitant]

REACTIONS (6)
  - ASTHENIA [None]
  - C-REACTIVE PROTEIN INCREASED [None]
  - CARDIAC ARREST [None]
  - CONVULSION [None]
  - DIZZINESS [None]
  - SYNCOPE [None]
